FAERS Safety Report 9524305 (Version 1)
Quarter: 2013Q1

REPORT INFORMATION
  Report Type: Spontaneous
  Country: US (occurrence: None)
  Receive Date: 20130305
  Receipt Date: 20130305
  Transmission Date: 20140127
  Serious: Yes (Other)
  Sender: FDA-Public Use
  Company Number: 163-21880-12030135

PATIENT
  Age: 88 Year
  Sex: Male

DRUGS (2)
  1. REVLIMID [Suspect]
     Indication: LANGERHANS^ CELL HISTIOCYTOSIS
     Dosage: 5 MG, DAILY X 21D, PO
     Route: 048
     Dates: start: 20120216, end: 20120223
  2. ASA (ACETYLSALICYLIC ACID) (UNKNOWN) [Concomitant]

REACTIONS (4)
  - Exfoliative rash [None]
  - Erythema [None]
  - Oedema peripheral [None]
  - Condition aggravated [None]
